FAERS Safety Report 18775988 (Version 2)
Quarter: 2021Q1

REPORT INFORMATION
  Report Type: Spontaneous
  Country: US (occurrence: US)
  Receive Date: 20210122
  Receipt Date: 20210203
  Transmission Date: 20210419
  Serious: No
  Sender: FDA-Public Use
  Company Number: US-TAKEDA-2021TUS003392

PATIENT
  Age: 69 Year
  Sex: Female

DRUGS (1)
  1. ALUNBRIG [Suspect]
     Active Substance: BRIGATINIB
     Indication: PRODUCT USED FOR UNKNOWN INDICATION
     Dosage: 180 MILLIGRAM, QD
     Route: 065
     Dates: start: 202012

REACTIONS (7)
  - Musculoskeletal stiffness [Unknown]
  - Blood pressure diastolic increased [Unknown]
  - Anxiety [Unknown]
  - Back pain [Unknown]
  - Arthralgia [Unknown]
  - Hepatic enzyme increased [Unknown]
  - Restlessness [Unknown]

NARRATIVE: CASE EVENT DATE: 20201220
